FAERS Safety Report 4433335-7 (Version None)
Quarter: 2004Q3

REPORT INFORMATION
  Report Type: 
  Country: None (occurrence: None)
  Receive Date: 20040820
  Receipt Date: 20040730
  Transmission Date: 20050211
  Serious: Yes (Other)
  Sender: FDA-Public Use
  Company Number: WAES 0408GBR00018

PATIENT
  Age: 61 Year
  Sex: Male

DRUGS (11)
  1. INJ TIROFIBAN HCL [Suspect]
     Indication: ANGINA UNSTABLE
     Dosage: 18 ML/1X 9 ML/UNK
     Dates: start: 20040524, end: 20040524
  2. ASPIRIN [Concomitant]
  3. ATORVASTATIN CALCIUM [Concomitant]
  4. BISOPROLOL FUMARATE [Concomitant]
  5. CLOPIDOGREL BISULFATE [Concomitant]
  6. ENOXAPARIN SODIUM [Concomitant]
  7. FUROSEMIDE [Concomitant]
  8. ISOSORBIDE [Concomitant]
  9. NICORANDIL [Concomitant]
  10. RABEPRAZOLE SODIUM [Concomitant]
  11. SPIRONOLACTONE [Concomitant]

REACTIONS (2)
  - HEPATIC FAILURE [None]
  - RENAL FAILURE [None]
